FAERS Safety Report 4307512-X (Version None)
Quarter: 2004Q1

REPORT INFORMATION
  Report Type: 
  Country: None (occurrence: None)
  Receive Date: 20040226
  Receipt Date: 20040213
  Transmission Date: 20041129
  Serious: Yes (Other)
  Sender: FDA-Public Use
  Company Number: 2004012267

PATIENT
  Age: 58 Year
  Sex: Female

DRUGS (3)
  1. NORVASC [Suspect]
     Indication: BLOOD PRESSURE ABNORMAL
     Dosage: 5 MG (UNKNOWN), UNKNOWN
  2. LIPITOR [Suspect]
     Indication: BLOOD CHOLESTEROL ABNORMAL
     Dosage: 40 MG (UNKNOWN), UNKNOWN
  3. ALL OTHER THERAPEUTIC PRODUCTS [Suspect]
     Indication: ILL-DEFINED DISORDER
     Dosage: UNKNOWN (UNKNOWN), OPHTHALMIC
     Route: 047

REACTIONS (10)
  - ABDOMINAL PAIN UPPER [None]
  - ANKLE FRACTURE [None]
  - FATIGUE [None]
  - HYPERSENSITIVITY [None]
  - HYPERSOMNIA [None]
  - LIBIDO DECREASED [None]
  - MOOD ALTERED [None]
  - NERVOUSNESS [None]
  - PANIC REACTION [None]
  - RASH [None]
